FAERS Safety Report 7749482 (Version 2)
Quarter: 2015Q3

REPORT INFORMATION
  Report Type: Spontaneous
  Country: JP (occurrence: JP)
  Receive Date: 20110105
  Receipt Date: 20150723
  Transmission Date: 20151125
  Serious: Yes (Death, Hospitalization)
  Sender: FDA-Public Use
  Company Number: JP-AMGEN-JPNCT2010005383

PATIENT
  Age: 73 Year
  Sex: Male

DRUGS (9)
  1. ISCOTIN [Concomitant]
     Active Substance: ISONIAZID
     Indication: ANTIBIOTIC PROPHYLAXIS
     Dosage: 300 MG, 1X/DAY
     Route: 048
     Dates: start: 20050816, end: 20050919
  2. MOVER [Concomitant]
     Indication: RHEUMATOID ARTHRITIS
     Dosage: 300 MG, 1X/DAY
     Route: 048
     Dates: start: 20050629, end: 20050919
  3. PREDONINE [Concomitant]
     Active Substance: PREDNISOLONE\PREDNISOLONE ACETATE\PREDNISOLONE SODIUM SUCCINATE
     Dosage: 5 MG, 1X/DAY
     Route: 048
     Dates: start: 200505, end: 200507
  4. PREDONINE [Concomitant]
     Active Substance: PREDNISOLONE\PREDNISOLONE ACETATE\PREDNISOLONE SODIUM SUCCINATE
     Dosage: 10 MG, 1X/DAY
     Route: 048
     Dates: start: 200507, end: 20050815
  5. ENBREL [Suspect]
     Active Substance: ETANERCEPT
     Indication: RHEUMATOID ARTHRITIS
     Dosage: 25 MG, 2 TIMES/WK
     Route: 058
     Dates: start: 20050816, end: 20100916
  6. GLIMICRON [Concomitant]
     Active Substance: GLICLAZIDE
     Dosage: 40 MG, 1X/DAY
     Route: 048
     Dates: start: 20050614, end: 20050919
  7. VOLTAREN - SLOW RELEASE ^CIBA-GEIGY^ [Concomitant]
     Dosage: 75 MG, 1X/DAY
     Route: 048
     Dates: start: 20050629, end: 20050919
  8. TAKEPRON [Concomitant]
     Active Substance: LANSOPRAZOLE
     Dosage: 15 MG, 1X/DAY
     Route: 048
     Dates: start: 20050614, end: 20050919
  9. PREDONINE [Concomitant]
     Active Substance: PREDNISOLONE\PREDNISOLONE ACETATE\PREDNISOLONE SODIUM SUCCINATE
     Dosage: 5 MG 1 TIMES PER 1 WK
     Route: 048
     Dates: start: 20050816, end: 20050919

REACTIONS (2)
  - Respiratory failure [Fatal]
  - Pneumocystis jirovecii pneumonia [Fatal]

NARRATIVE: CASE EVENT DATE: 200509
